FAERS Safety Report 8517845-9 (Version None)
Quarter: 2012Q3

REPORT INFORMATION
  Report Type: 
  Country: None (occurrence: None)
  Receive Date: 20120712
  Receipt Date: 20120712
  Transmission Date: 20120928
  Serious: Yes (Hospitalization)
  Sender: FDA-Public Use
  Company Number: None

PATIENT
  Age: 81 Year
  Sex: Male
  Weight: 71 kg

DRUGS (2)
  1. RIVAROXABAN [Suspect]
     Indication: KNEE ARTHROPLASTY
  2. RIVAROXABAN [Suspect]
     Indication: THROMBOSIS PROPHYLAXIS

REACTIONS (2)
  - HAEMOGLOBIN DECREASED [None]
  - HAEMATOMA [None]
